FAERS Safety Report 19590690 (Version 5)
Quarter: 2021Q3

REPORT INFORMATION
  Report Type: Spontaneous
  Country: PL (occurrence: PL)
  Receive Date: 20210721
  Receipt Date: 20210831
  Transmission Date: 20211014
  Serious: Yes (Hospitalization, Other)
  Sender: FDA-Public Use
  Company Number: PL-PFIZER INC-2021851848

PATIENT
  Age: 62 Year
  Sex: Male
  Weight: 98 kg

DRUGS (13)
  1. PANTOPRAZOLE [Suspect]
     Active Substance: PANTOPRAZOLE
     Dosage: 20 MG, 1X/DAY
     Route: 065
  2. TELMISARTAN. [Suspect]
     Active Substance: TELMISARTAN
     Dosage: 80 MG, 1X/DAY
     Route: 065
  3. PANTOPRAZOLE [Suspect]
     Active Substance: PANTOPRAZOLE
     Dosage: 20 MG, 1X/DAY
     Route: 065
  4. ACETYLSALICYLIC ACID [Suspect]
     Active Substance: ASPIRIN
     Dosage: 75 MG, 1X/DAY (IN THE EVENING)
     Route: 065
  5. METFORMIN [Suspect]
     Active Substance: METFORMIN HYDROCHLORIDE
     Dosage: 850 MG, 3X/DAY
     Route: 065
  6. ROSUVASTATIN. [Suspect]
     Active Substance: ROSUVASTATIN
     Dosage: 10 MG, 1X/DAY (IN THE EVENING)
     Route: 065
  7. FENOBIBRATE [Suspect]
     Active Substance: FENOFIBRATE
     Dosage: 215 MG, 1X/DAY (IN THE MORNING)
     Route: 065
  8. AMLODIPINE BESILATE [Suspect]
     Active Substance: AMLODIPINE BESYLATE
     Dosage: 10 MG, 1X/DAY (IN MORNING)
     Route: 065
  9. FLUTICASONE/SALMETEROL [Suspect]
     Active Substance: FLUTICASONE PROPIONATE\SALMETEROL XINAFOATE
     Dosage: 2 DF (250 ?G +50 UG) INHALATION
     Route: 055
  10. CARVEDILOL. [Suspect]
     Active Substance: CARVEDILOL
     Dosage: 12.5 MG, 1X/DAY
     Route: 065
  11. TRIMETAZIDINE [TRIMETAZIDINE HYDROCHLORIDE] [Suspect]
     Active Substance: TRIMETAZIDINE DIHYDROCHLORIDE
     Dosage: 40 MG, DAILY
     Route: 065
  12. LINAGLIPTIN [Suspect]
     Active Substance: LINAGLIPTIN
     Dosage: 5 MG, 1X/DAY
     Route: 065
  13. HYDROCHLOROTHIAZIDE. [Suspect]
     Active Substance: HYDROCHLOROTHIAZIDE
     Dosage: 12.5 MG, 1X/DAY (IN THE MORNING)
     Route: 065

REACTIONS (26)
  - Syncope [Unknown]
  - Ill-defined disorder [Unknown]
  - Intestinal obstruction [Unknown]
  - Cardiac failure [Unknown]
  - Skin lesion [Unknown]
  - Left ventricular dysfunction [Unknown]
  - Rales [Unknown]
  - Cardiac discomfort [Unknown]
  - Stenosis [Unknown]
  - Hypotension [Unknown]
  - Fatigue [Unknown]
  - Bundle branch block left [Unknown]
  - Electrocardiogram QT prolonged [Unknown]
  - Mitral valve incompetence [Unknown]
  - Pericardial disease [Unknown]
  - Joint swelling [Unknown]
  - Pulmonary valve disease [Unknown]
  - Ventricular arrhythmia [Unknown]
  - Supraventricular tachycardia [Unknown]
  - Diastolic dysfunction [Unknown]
  - Tricuspid valve incompetence [Unknown]
  - Physical examination abnormal [Unknown]
  - Mitral valve disease [Unknown]
  - Ventricular tachycardia [Unknown]
  - Ejection fraction decreased [Unknown]
  - Cardiomegaly [Unknown]

NARRATIVE: CASE EVENT DATE: 202009
